FAERS Safety Report 22641372 (Version 1)
Quarter: 2023Q2

REPORT INFORMATION
  Report Type: Spontaneous
  Country: US (occurrence: US)
  Receive Date: 20230626
  Receipt Date: 20230626
  Transmission Date: 20230721
  Serious: Yes (Hospitalization)
  Sender: FDA-Public Use
  Company Number: US-BAYER-2023A085697

PATIENT
  Age: 68 Year
  Sex: Male

DRUGS (1)
  1. ADEMPAS [Suspect]
     Active Substance: RIOCIGUAT
     Dosage: UNK

REACTIONS (2)
  - Hospitalisation [None]
  - Product dose omission issue [None]

NARRATIVE: CASE EVENT DATE: 20230615
